FAERS Safety Report 13981005 (Version 1)
Quarter: 2017Q3

REPORT INFORMATION
  Report Type: Spontaneous
  Country: US (occurrence: None)
  Receive Date: 20170915
  Receipt Date: 20170915
  Transmission Date: 20171128
  Serious: Yes (Hospitalization)
  Sender: FDA-Public Use
  Company Number: None

PATIENT
  Age: 75 Year
  Sex: Male

DRUGS (10)
  1. FAMOTIDINE. [Concomitant]
     Active Substance: FAMOTIDINE
  2. LATANOPROST. [Concomitant]
     Active Substance: LATANOPROST
  3. FUROSEMIDE. [Concomitant]
     Active Substance: FUROSEMIDE
  4. DENOSUMAB [Suspect]
     Active Substance: DENOSUMAB
     Indication: NEOPLASM MALIGNANT
     Route: 058
     Dates: start: 20170301, end: 20170629
  5. MAGNESIUM SULFATE. [Concomitant]
     Active Substance: MAGNESIUM SULFATE
  6. INSULIN ASPART [Concomitant]
     Active Substance: INSULIN ASPART
  7. DOCETAXEL. [Concomitant]
     Active Substance: DOCETAXEL
  8. HEPARIN [Concomitant]
     Active Substance: HEPARIN SODIUM
  9. CALCIUM CARBONATE. [Concomitant]
     Active Substance: CALCIUM CARBONATE
  10. CARBOPLATIN. [Concomitant]
     Active Substance: CARBOPLATIN

REACTIONS (5)
  - Hyperkalaemia [None]
  - Electrocardiogram T wave peaked [None]
  - Electrocardiogram QT prolonged [None]
  - Electrocardiogram abnormal [None]
  - Hypocalcaemia [None]

NARRATIVE: CASE EVENT DATE: 20160727
